FAERS Safety Report 20840456 (Version 1)
Quarter: 2022Q2

REPORT INFORMATION
  Report Type: Report from Study
  Country: US (occurrence: US)
  Receive Date: 20220517
  Receipt Date: 20220517
  Transmission Date: 20220721
  Serious: Yes (Hospitalization)
  Sender: FDA-Public Use
  Company Number: US-RADIUS HEALTH, INC.-2022US000927

PATIENT
  Age: 61 Year
  Sex: Female

DRUGS (2)
  1. TYMLOS [Suspect]
     Active Substance: ABALOPARATIDE
     Indication: Osteoporosis
     Dosage: 80 MCG, QD
     Route: 065
     Dates: start: 20220217, end: 20220220
  2. TYMLOS [Suspect]
     Active Substance: ABALOPARATIDE
     Dosage: 80 MCG, QD
     Route: 065

REACTIONS (6)
  - Seizure [Not Recovered/Not Resolved]
  - Diarrhoea [Unknown]
  - Dizziness [Unknown]
  - Nausea [Unknown]
  - Fatigue [Unknown]
  - Product dose omission issue [Recovered/Resolved]

NARRATIVE: CASE EVENT DATE: 20220201
